FAERS Safety Report 5661250-X (Version None)
Quarter: 2008Q1

REPORT INFORMATION
  Report Type: 
  Country: None (occurrence: None)
  Receive Date: 20080312
  Receipt Date: 20080307
  Transmission Date: 20080703
  Serious: Yes (Hospitalization)
  Sender: FDA-Public Use
  Company Number: B0506082A

PATIENT
  Age: 43 Year
  Sex: Male
  Weight: 60 kg

DRUGS (7)
  1. PAXIL [Suspect]
     Indication: DEPRESSION
     Route: 048
  2. ZYPREXA [Suspect]
     Indication: DEPRESSION
     Dosage: 2.5MG PER DAY
     Route: 048
  3. SOLANAX [Suspect]
     Indication: DEPRESSION
     Dosage: .2MG PER DAY
     Route: 048
  4. SULPIRIDE [Suspect]
     Indication: DEPRESSION
     Dosage: 25MG PER DAY
     Route: 048
  5. MYSLEE [Suspect]
     Indication: INSOMNIA
     Dosage: 10MG PER DAY
     Route: 048
  6. SILECE [Suspect]
     Indication: INSOMNIA
     Dosage: 2MG PER DAY
     Route: 048
  7. RISPERDAL [Suspect]
     Indication: INSOMNIA

REACTIONS (3)
  - DEPRESSED LEVEL OF CONSCIOUSNESS [None]
  - OVERDOSE [None]
  - SUICIDE ATTEMPT [None]
